FAERS Safety Report 17742069 (Version 13)
Quarter: 2021Q3

REPORT INFORMATION
  Report Type: Spontaneous
  Country: US (occurrence: US)
  Receive Date: 20200504
  Receipt Date: 20210812
  Transmission Date: 20211014
  Serious: Yes (Other)
  Sender: FDA-Public Use
  Company Number: US-DSJP-DSU-2020-112655

PATIENT
  Sex: Female

DRUGS (4)
  1. TURALIO [Suspect]
     Active Substance: PEXIDARTINIB HYDROCHLORIDE
     Dosage: 400 MG, BID
     Route: 048
     Dates: start: 20200414
  2. TURALIO [Suspect]
     Active Substance: PEXIDARTINIB HYDROCHLORIDE
     Indication: NEOPLASM
     Dosage: 400 MG, BID
     Route: 048
     Dates: start: 20200414
  3. TURALIO [Suspect]
     Active Substance: PEXIDARTINIB HYDROCHLORIDE
     Dosage: 200 MG
     Route: 048
  4. TURALIO [Suspect]
     Active Substance: PEXIDARTINIB HYDROCHLORIDE
     Dosage: 200MG QAM, 400MG QPM
     Route: 048
     Dates: start: 20200414

REACTIONS (9)
  - Product dose omission issue [Unknown]
  - Abdominal discomfort [Recovered/Resolved]
  - Alopecia [Recovered/Resolved]
  - Urine odour abnormal [Recovered/Resolved]
  - Stent placement [Recovered/Resolved]
  - Visual impairment [Unknown]
  - Hair colour changes [Not Recovered/Not Resolved]
  - Optic neuritis [Unknown]
  - Lumbar puncture [Recovered/Resolved]

NARRATIVE: CASE EVENT DATE: 2020
